FAERS Safety Report 18658497 (Version 1)
Quarter: 2020Q4

REPORT INFORMATION
  Report Type: Spontaneous
  Country: US (occurrence: US)
  Receive Date: 20201223
  Receipt Date: 20201223
  Transmission Date: 20210114
  Serious: No
  Sender: FDA-Public Use
  Company Number: US-BAYER-2020-283930

PATIENT
  Sex: Female

DRUGS (1)
  1. VITRAKVI [Suspect]
     Active Substance: LAROTRECTINIB
     Indication: ACINAR CELL CARCINOMA OF PANCREAS
     Dosage: UNK
     Dates: start: 2020

REACTIONS (7)
  - Dizziness [None]
  - Peripheral swelling [None]
  - Weight increased [None]
  - Arthralgia [None]
  - Joint swelling [None]
  - Cough [None]
  - Myalgia [None]
